FAERS Safety Report 24149484 (Version 1)
Quarter: 2024Q3

REPORT INFORMATION
  Report Type: Spontaneous
  Country: FR (occurrence: FR)
  Receive Date: 20240730
  Receipt Date: 20240730
  Transmission Date: 20241017
  Serious: Yes (Hospitalization)
  Sender: JOHNSON AND JOHNSON
  Company Number: None

PATIENT
  Age: 23 Year
  Sex: Male

DRUGS (7)
  1. RISPERDAL [Suspect]
     Active Substance: RISPERIDONE
     Indication: Wrong patient received product
     Dosage: 2 MG ET 4 MG SUR LA JOURNEE
     Route: 048
     Dates: start: 20240611, end: 20240611
  2. POLYETHYLENE GLYCOLS [Suspect]
     Active Substance: POLYETHYLENE GLYCOLS
     Indication: Wrong patient received product
     Dosage: 2 SACHETS EN 1 PRISE (SACHETS DE 10G)
     Route: 048
     Dates: start: 20240611, end: 20240611
  3. PANTOPRAZOLE [Suspect]
     Active Substance: PANTOPRAZOLE
     Indication: Wrong patient received product
     Dosage: 20 MG EN UNE PRISE
     Route: 048
     Dates: start: 20240611, end: 20240611
  4. LOXAPINE SUCCINATE [Suspect]
     Active Substance: LOXAPINE SUCCINATE
     Indication: Wrong patient received product
     Dosage: 50 MG EN 1 PRISE
     Route: 048
     Dates: start: 20240611, end: 20240611
  5. ZUCLOPENTHIXOL [Suspect]
     Active Substance: ZUCLOPENTHIXOL
     Indication: Wrong patient received product
     Dosage: 10 ET 25 MG SUR LA JOURNEE
     Route: 048
     Dates: start: 20240611, end: 20240611
  6. AUGMENTIN [Suspect]
     Active Substance: AMOXICILLIN\CLAVULANATE POTASSIUM
     Indication: Wrong patient received product
     Dosage: SACHET DE 1G EN UNE PRISE
     Route: 048
     Dates: start: 20240611, end: 20240611
  7. LORAZEPAM [Suspect]
     Active Substance: LORAZEPAM
     Indication: Wrong patient received product
     Dosage: 2.5 MG EN 1 PRISE
     Route: 048
     Dates: start: 20240611, end: 20240611

REACTIONS (2)
  - Wrong patient received product [Recovered/Resolved]
  - Somnolence [Recovered/Resolved]

NARRATIVE: CASE EVENT DATE: 20240611
